FAERS Safety Report 18169769 (Version 2)
Quarter: 2022Q3

REPORT INFORMATION
  Report Type: Spontaneous
  Country: CA (occurrence: CA)
  Receive Date: 20200819
  Receipt Date: 20220708
  Transmission Date: 20221027
  Serious: Yes (Other)
  Sender: FDA-Public Use
  Company Number: CA-GSKCCFAMERS-CASE-00783859_AE-45786

PATIENT

DRUGS (1)
  1. FLUTICASONE FUROATE [Suspect]
     Active Substance: FLUTICASONE FUROATE
     Indication: Product used for unknown indication
     Dosage: UNK

REACTIONS (6)
  - Coeliac disease [Unknown]
  - Abdominal discomfort [Unknown]
  - Dyspepsia [Unknown]
  - Burning sensation [Unknown]
  - Malaise [Unknown]
  - Adverse reaction [Unknown]
